FAERS Safety Report 9192046 (Version 1)
Quarter: 2013Q1

REPORT INFORMATION
  Report Type: Spontaneous
  Country: IN (occurrence: None)
  Receive Date: 20130325
  Receipt Date: 20130325
  Transmission Date: 20140127
  Serious: Yes (Life-Threatening, Hospitalization, Other)
  Sender: FDA-Public Use
  Company Number: 2013P1003358

PATIENT
  Age: 8 Year
  Sex: 0

DRUGS (2)
  1. PHENYTOIN [Suspect]
     Indication: GRAND MAL CONVULSION
     Route: 042
  2. DIAZEPAM (UNKNOWN-UNKNOWN) [Concomitant]

REACTIONS (13)
  - Acquired macroglossia [None]
  - Tongue haemorrhage [None]
  - Oral infection [None]
  - Speech disorder [None]
  - Dysphagia [None]
  - Obstructive airways disorder [None]
  - Cerebral palsy [None]
  - Disease complication [None]
  - Neurological symptom [None]
  - Angioedema [None]
  - Blood calcium decreased [None]
  - Haemoglobin decreased [None]
  - White blood cell count increased [None]
